FAERS Safety Report 5409563-0 (Version None)
Quarter: 2007Q3

REPORT INFORMATION
  Report Type: 
  Country: None (occurrence: None)
  Receive Date: 20070809
  Receipt Date: 20070803
  Transmission Date: 20080115
  Serious: Yes (Death, Hospitalization)
  Sender: FDA-Public Use
  Company Number: JP-GENENTECH-245610

PATIENT
  Sex: Male

DRUGS (14)
  1. RITUXAN [Suspect]
     Indication: NON-HODGKIN'S LYMPHOMA
     Dosage: 500 MG, UNK
     Route: 042
     Dates: start: 20070612
  2. SOBUZOXANE [Suspect]
     Indication: NON-HODGKIN'S LYMPHOMA
     Dosage: 800 MG, UNK
     Route: 048
     Dates: start: 20070613
  3. ETOPOSIDE [Suspect]
     Indication: NON-HODGKIN'S LYMPHOMA
     Dosage: 100 MG, UNK
     Route: 048
     Dates: start: 20070613
  4. OMEPRAZOLE [Suspect]
     Indication: GASTRITIS
     Dosage: 26 MG, UNK
     Route: 048
     Dates: start: 20070601
  5. SOLU-MEDROL [Suspect]
     Indication: NEUTROPENIA
     Dosage: 1 G, UNK
     Route: 042
     Dates: start: 20070531
  6. SENNOSIDE [Suspect]
     Indication: CONSTIPATION
     Dosage: 24 MG, UNK
     Route: 048
     Dates: start: 20070602
  7. MUCOSTA [Suspect]
     Indication: GASTRITIS
     Dosage: 300 MG, UNK
     Route: 048
     Dates: start: 20070530
  8. FAMOTIDINE [Suspect]
     Indication: GASTRITIS
     Dosage: 20 MG, UNK
     Dates: start: 20070531
  9. LASIX [Suspect]
     Indication: OEDEMA
     Dosage: 20 MG, UNK
     Route: 048
     Dates: start: 20070601
  10. PLATELETS [Concomitant]
     Indication: THROMBOCYTOPENIC PURPURA
     Dates: start: 20070528, end: 20070621
  11. ZOLPIDEM TARTRATE [Concomitant]
     Indication: INSOMNIA
     Dosage: 5 MG, UNK
     Dates: start: 20070526
  12. CEFZON [Concomitant]
     Indication: PROPHYLAXIS
     Dosage: 300 MG, UNK
     Route: 048
     Dates: start: 20070529
  13. SPIRONOLACTONE [Concomitant]
     Indication: OEDEMA
     Dosage: 25 MG, UNK
     Route: 048
     Dates: start: 20070526
  14. FILGRASTIM [Concomitant]
     Indication: NEUTROPENIA
     Dosage: 75 A?G, UNK
     Dates: start: 20070526

REACTIONS (8)
  - BRADYCARDIA [None]
  - CARDIAC ARREST [None]
  - HAEMOGLOBIN DECREASED [None]
  - PNEUMONIA KLEBSIELLA [None]
  - RESPIRATORY ARREST [None]
  - RESPIRATORY FAILURE [None]
  - SEPTIC SHOCK [None]
  - WHITE BLOOD CELL COUNT DECREASED [None]
